FAERS Safety Report 21062844 (Version 2)
Quarter: 2022Q3

REPORT INFORMATION
  Report Type: Spontaneous
  Country: US (occurrence: US)
  Receive Date: 20220711
  Receipt Date: 20220930
  Transmission Date: 20221027
  Serious: No
  Sender: FDA-Public Use
  Company Number: US-BIOVITRUM-2022US08623

PATIENT
  Sex: Female

DRUGS (2)
  1. KINERET [Suspect]
     Active Substance: ANAKINRA
     Indication: Rheumatoid arthritis
     Dates: start: 20210713
  2. KINERET [Suspect]
     Active Substance: ANAKINRA
     Dates: start: 202107

REACTIONS (2)
  - COVID-19 [Unknown]
  - Adverse drug reaction [Unknown]
